FAERS Safety Report 9871100 (Version 1)
Quarter: 2014Q1

REPORT INFORMATION
  Report Type: Spontaneous
  Country: US (occurrence: US)
  Receive Date: 20140205
  Receipt Date: 20140205
  Transmission Date: 20141002
  Serious: Yes (Other)
  Sender: FDA-Public Use
  Company Number: PHHY2014US012156

PATIENT
  Age: 61 Year
  Sex: Female

DRUGS (1)
  1. METHOTREXATE [Suspect]
     Indication: LYMPHOMA
     Dosage: 0.1 ML, WEKLY
     Route: 031

REACTIONS (3)
  - Corneal disorder [Recovered/Resolved]
  - Visual acuity reduced [Recovered/Resolved]
  - Pain [Recovered/Resolved]
